FAERS Safety Report 4757333-9 (Version None)
Quarter: 2005Q3

REPORT INFORMATION
  Report Type: 
  Country: None (occurrence: None)
  Receive Date: 20050831
  Receipt Date: 20041129
  Transmission Date: 20060218
  Serious: Yes (Hospitalization)
  Sender: FDA-Public Use
  Company Number: FR-GILEAD-2004-0007807

PATIENT
  Age: 56 Year
  Sex: Male
  Weight: 50 kg

DRUGS (6)
  1. VIREAD [Suspect]
     Indication: HIV INFECTION
     Route: 048
     Dates: start: 20041010, end: 20041108
  2. NORVIR [Concomitant]
     Route: 048
     Dates: start: 20041010, end: 20041109
  3. EPIVIR [Concomitant]
     Route: 048
     Dates: start: 20041010, end: 20041109
  4. FUZEON [Concomitant]
     Route: 058
     Dates: start: 20041010, end: 20041109
  5. TIPRANAVIR [Concomitant]
     Route: 048
     Dates: start: 20041010, end: 20041109
  6. BACTRIM [Concomitant]
     Route: 048
     Dates: end: 20041108

REACTIONS (12)
  - ANAEMIA [None]
  - ANOREXIA [None]
  - BLOOD PRESSURE INCREASED [None]
  - CONSTIPATION [None]
  - HAEMODIALYSIS [None]
  - HYPOKALAEMIA [None]
  - HYPONATRAEMIA [None]
  - OEDEMA PERIPHERAL [None]
  - RENAL FAILURE ACUTE [None]
  - SLEEP DISORDER [None]
  - TUBULOINTERSTITIAL NEPHRITIS [None]
  - WEIGHT DECREASED [None]
